FAERS Safety Report 20639720 (Version 5)
Quarter: 2023Q4

REPORT INFORMATION
  Report Type: Spontaneous
  Country: US (occurrence: US)
  Receive Date: 20220326
  Receipt Date: 20231005
  Transmission Date: 20240110
  Serious: No
  Sender: FDA-Public Use
  Company Number: US-SA-SAC20220316002118

PATIENT
  Age: 20 Year
  Sex: Female
  Weight: 65.76 kg

DRUGS (2)
  1. CEREZYME [Suspect]
     Active Substance: IMIGLUCERASE
     Indication: Gaucher^s disease
     Dosage: 3600 U, QOW
     Route: 041
     Dates: start: 20210112, end: 20220830
  2. CEREZYME [Suspect]
     Active Substance: IMIGLUCERASE
     Dosage: 4000 U, QOW
     Route: 042
     Dates: start: 202301

REACTIONS (6)
  - Weight increased [Not Recovered/Not Resolved]
  - Viral infection [Unknown]
  - Pyrexia [Unknown]
  - Malaise [Recovered/Resolved]
  - Weight decreased [Unknown]
  - Maternal exposure during pregnancy [Unknown]

NARRATIVE: CASE EVENT DATE: 20220801
